FAERS Safety Report 21099378 (Version 1)
Quarter: 2022Q3

REPORT INFORMATION
  Report Type: Spontaneous
  Country: GB (occurrence: GB)
  Receive Date: 20220719
  Receipt Date: 20220719
  Transmission Date: 20221027
  Serious: Yes (Other)
  Sender: FDA-Public Use
  Company Number: None

PATIENT
  Sex: Female

DRUGS (1)
  1. PAXLOVID [Suspect]
     Active Substance: NIRMATRELVIR\RITONAVIR
     Indication: Coronavirus infection
     Dosage: UNK
     Dates: start: 20220526

REACTIONS (10)
  - Sjogren^s syndrome [Recovering/Resolving]
  - Skin irritation [Recovered/Resolved]
  - Headache [Recovered/Resolved]
  - Dizziness [Recovered/Resolved]
  - Dysgeusia [Not Recovered/Not Resolved]
  - Ageusia [Recovering/Resolving]
  - Vision blurred [Recovered/Resolved]
  - Restlessness [Recovered/Resolved]
  - Insomnia [Unknown]
  - Malaise [Recovering/Resolving]

NARRATIVE: CASE EVENT DATE: 20220526
